FAERS Safety Report 8439251-8 (Version None)
Quarter: 2012Q2

REPORT INFORMATION
  Report Type: 
  Country: None (occurrence: None)
  Receive Date: 20120615
  Receipt Date: 20120611
  Transmission Date: 20120825
  Serious: Yes (Other)
  Sender: FDA-Public Use
  Company Number: PHHY2011BR70695

PATIENT
  Sex: Male
  Weight: 50 kg

DRUGS (2)
  1. RITALIN LA [Suspect]
     Indication: ATTENTION DEFICIT/HYPERACTIVITY DISORDER
     Dosage: 1 DF, DAILY
     Route: 048
     Dates: start: 20110101
  2. RITALIN [Suspect]
     Indication: ATTENTION DEFICIT/HYPERACTIVITY DISORDER
     Dosage: 2 DF, DAILY, ONE IN MORNING ONE IN AFTERNOON
     Route: 048
     Dates: start: 20060101, end: 20110101

REACTIONS (7)
  - AGGRESSION [None]
  - DRUG INEFFECTIVE [None]
  - FALL [None]
  - STUBBORNNESS [None]
  - DISTURBANCE IN ATTENTION [None]
  - FOOT FRACTURE [None]
  - AGITATION [None]
